FAERS Safety Report 19277780 (Version 1)
Quarter: 2021Q2

REPORT INFORMATION
  Report Type: Spontaneous
  Country: GH (occurrence: GH)
  Receive Date: 20210520
  Receipt Date: 20210520
  Transmission Date: 20210717
  Serious: Yes (Death)
  Sender: FDA-Public Use
  Company Number: NVSC2021GH111926

PATIENT
  Sex: Male

DRUGS (1)
  1. GLIVEC [Suspect]
     Active Substance: IMATINIB MESYLATE
     Indication: CHRONIC MYELOID LEUKAEMIA
     Dosage: 400 MG (4 X 100MG TABLETS)
     Route: 065

REACTIONS (2)
  - Injury [Unknown]
  - Death [Fatal]
